FAERS Safety Report 8435122-1 (Version None)
Quarter: 2012Q2

REPORT INFORMATION
  Report Type: 
  Country: None (occurrence: None)
  Receive Date: 20120614
  Receipt Date: 20120611
  Transmission Date: 20120825
  Serious: Yes (Other)
  Sender: FDA-Public Use
  Company Number: PHHY2012MX050299

PATIENT
  Sex: Female

DRUGS (4)
  1. CONCOR [Concomitant]
     Indication: BLOOD PRESSURE
     Dosage: 1 DF, UNK
     Dates: start: 20090601
  2. ZOLEDRONOC ACID [Suspect]
     Indication: OSTEOPOROSIS
     Dosage: 5 MG/100 ML YEARLY
     Route: 042
     Dates: start: 20110601
  3. ESCITALOPRAM [Concomitant]
     Indication: DEPRESSION
     Dosage: 1 DF, UNK
     Dates: start: 20030601
  4. JANUMET [Concomitant]
     Indication: DIABETES MELLITUS
     Dosage: 2 DF, UNK
     Dates: start: 20090601

REACTIONS (5)
  - BACK DISORDER [None]
  - GAIT DISTURBANCE [None]
  - HEPATIC PAIN [None]
  - HEPATOMEGALY [None]
  - HEPATIC STEATOSIS [None]
